FAERS Safety Report 23743513 (Version 1)
Quarter: 2024Q2

REPORT INFORMATION
  Report Type: Spontaneous
  Country: US (occurrence: None)
  Receive Date: 20240413
  Receipt Date: 20240413
  Transmission Date: 20240715
  Serious: Yes (Hospitalization, Disabling, Other)
  Sender: FDA-Public Use
  Company Number: None

PATIENT
  Age: 59 Year
  Sex: Male
  Weight: 73.8 kg

DRUGS (1)
  1. INFLIXIMAB-ABDA [Suspect]
     Active Substance: INFLIXIMAB-ABDA
     Indication: Colitis ulcerative
     Dates: start: 20230921, end: 20240222

REACTIONS (4)
  - Colitis ulcerative [None]
  - Symptom recurrence [None]
  - Chronic inflammatory demyelinating polyradiculoneuropathy [None]
  - Therapeutic product effect decreased [None]

NARRATIVE: CASE EVENT DATE: 20231228
